FAERS Safety Report 13376740 (Version 1)
Quarter: 2017Q1

REPORT INFORMATION
  Report Type: Spontaneous
  Country: FR (occurrence: FR)
  Receive Date: 20170328
  Receipt Date: 20170328
  Transmission Date: 20170429
  Serious: Yes (Hospitalization, Other)
  Sender: FDA-Public Use
  Company Number: FR-ASTRAZENECA-2017SE31520

PATIENT
  Age: 87 Year
  Sex: Female

DRUGS (4)
  1. XEROQUEL [Suspect]
     Active Substance: QUETIAPINE FUMARATE
     Indication: DEPRESSION
     Route: 048
     Dates: end: 20170307
  2. MIANSERIN [Suspect]
     Active Substance: MIANSERIN
     Indication: DEPRESSION
     Route: 048
     Dates: start: 20170130, end: 20170307
  3. FLUOXETINE [Concomitant]
     Active Substance: FLUOXETINE HYDROCHLORIDE
  4. IMOVANE [Concomitant]
     Active Substance: ZOPICLONE

REACTIONS (5)
  - Pubis fracture [Unknown]
  - Agranulocytosis [Recovered/Resolved]
  - Fall [Unknown]
  - Depressed mood [Unknown]
  - Sleep disorder [Unknown]

NARRATIVE: CASE EVENT DATE: 20170307
